FAERS Safety Report 5454455-4 (Version None)
Quarter: 2007Q3

REPORT INFORMATION
  Report Type: 
  Country: None (occurrence: None)
  Receive Date: 20070917
  Receipt Date: 20060928
  Transmission Date: 20080115
  Serious: Yes (Hospitalization)
  Sender: FDA-Public Use
  Company Number: US-ASTRAZENECA-2006UW18967

PATIENT
  Age: 19 Year
  Sex: Female

DRUGS (1)
  1. SEROQUEL [Suspect]
     Dosage: 20 X 100 MG TABLETS - INTENTIONAL OVERDOSE
     Route: 048
     Dates: start: 20060927, end: 20060927

REACTIONS (3)
  - INTENTIONAL OVERDOSE [None]
  - SEDATION [None]
  - SOMNOLENCE [None]
